FAERS Safety Report 9420193 (Version 2)
Quarter: 2013Q3

REPORT INFORMATION
  Report Type: Spontaneous
  Country: FR (occurrence: FR)
  Receive Date: 20130725
  Receipt Date: 20130829
  Transmission Date: 20140515
  Serious: Yes (Hospitalization)
  Sender: FDA-Public Use
  Company Number: FR-SANOFI-AVENTIS-2013SA073229

PATIENT
  Age: 39 Year
  Sex: Female

DRUGS (12)
  1. DOLIPRANEORO [Suspect]
     Indication: PRODUCT USED FOR UNKNOWN INDICATION
     Route: 048
     Dates: start: 20130629
  2. LOVENOX [Suspect]
     Indication: PRODUCT USED FOR UNKNOWN INDICATION
     Route: 058
     Dates: start: 20130701, end: 20130707
  3. TEGELINE [Suspect]
     Indication: ACUTE POLYNEUROPATHY
     Route: 042
     Dates: start: 20130702, end: 20130706
  4. TEGELINE [Suspect]
     Indication: ACUTE POLYNEUROPATHY
     Route: 042
     Dates: start: 20130702, end: 20130706
  5. TEGELINE [Suspect]
     Indication: ACUTE POLYNEUROPATHY
     Route: 042
     Dates: start: 20130702, end: 20130706
  6. TEGELINE [Suspect]
     Indication: ACUTE POLYNEUROPATHY
     Route: 042
     Dates: start: 20130702, end: 20130706
  7. TRAMADOL HYDROCHLORIDE [Suspect]
     Indication: PRODUCT USED FOR UNKNOWN INDICATION
     Route: 048
     Dates: start: 20130630, end: 20130704
  8. ACUPAN [Suspect]
     Indication: PRODUCT USED FOR UNKNOWN INDICATION
     Route: 048
     Dates: start: 20130630, end: 20130707
  9. CAFFEINE [Concomitant]
  10. SOLUTIONS AFFECTING THE ELECTROLYTE BALANCE [Concomitant]
  11. VITAMIN B NOS [Concomitant]
  12. XANAX [Concomitant]
     Dates: start: 20130630, end: 20130630

REACTIONS (1)
  - Hepatitis [Recovered/Resolved]
